FAERS Safety Report 8197878-5 (Version None)
Quarter: 2012Q1

REPORT INFORMATION
  Report Type: 
  Country: None (occurrence: None)
  Receive Date: 20120309
  Receipt Date: 20120302
  Transmission Date: 20120608
  Serious: Yes (Hospitalization)
  Sender: FDA-Public Use
  Company Number: US-UCBSA-052514

PATIENT

DRUGS (1)
  1. CIMZIA [Suspect]
     Dosage: GIVEN 2 DOSES (WEEK 0 AND WEEK 2)
     Route: 058

REACTIONS (1)
  - RHABDOMYOLYSIS [None]
